FAERS Safety Report 14581496 (Version 2)
Quarter: 2018Q1

REPORT INFORMATION
  Report Type: Spontaneous
  Country: US (occurrence: US)
  Receive Date: 20180228
  Receipt Date: 20180326
  Transmission Date: 20180509
  Serious: Yes (Hospitalization)
  Sender: FDA-Public Use
  Company Number: US-UNITED THERAPEUTICS-UNT-2018-002538

PATIENT
  Age: 1 Year
  Sex: Female
  Weight: 8.21 kg

DRUGS (2)
  1. REVATIO [Concomitant]
     Active Substance: SILDENAFIL CITRATE
     Indication: PRODUCT USED FOR UNKNOWN INDICATION
     Route: 065
  2. REMODULIN [Suspect]
     Active Substance: TREPROSTINIL
     Indication: PULMONARY ARTERIAL HYPERTENSION
     Dosage: 0.0486 ?G/KG, CONTINUING
     Route: 058
     Dates: start: 20161117

REACTIONS (2)
  - Tracheitis [Unknown]
  - Hypoxia [Unknown]

NARRATIVE: CASE EVENT DATE: 20180220
